FAERS Safety Report 4757686-1 (Version None)
Quarter: 2005Q3

REPORT INFORMATION
  Report Type: 
  Country: None (occurrence: None)
  Receive Date: 20050831
  Receipt Date: 20050825
  Transmission Date: 20060218
  Serious: Yes (Death, Hospitalization)
  Sender: FDA-Public Use
  Company Number: KE-GLAXOSMITHKLINE-B0391871A

PATIENT
  Age: 7 Month
  Sex: Female

DRUGS (5)
  1. NEVIRAPINE [Suspect]
     Indication: ANTIVIRAL PROPHYLAXIS
     Dosage: 2MGK SINGLE DOSE
     Route: 048
     Dates: start: 20041124, end: 20041124
  2. COMBIVIR [Suspect]
     Indication: ANTIVIRAL PROPHYLAXIS
     Dosage: 1TAB TWICE PER DAY
     Dates: start: 20041108
  3. NEVIRAPINE [Suspect]
     Dates: start: 20041108
  4. AUGMENTIN '125' [Suspect]
     Dates: start: 20050627
  5. COTRIMOXAZOLE [Concomitant]
     Indication: PROPHYLAXIS
     Dates: start: 20041230

REACTIONS (12)
  - DEHYDRATION [None]
  - DRUG EXPOSURE DURING PREGNANCY [None]
  - DRUG EXPOSURE VIA BREAST MILK [None]
  - DYSPNOEA [None]
  - EYES SUNKEN [None]
  - FONTANELLE DEPRESSED [None]
  - GASTROENTERITIS [None]
  - MALARIA [None]
  - NASAL FLARING [None]
  - ORAL CANDIDIASIS [None]
  - PYREXIA [None]
  - SKIN TURGOR DECREASED [None]
